FAERS Safety Report 8874225 (Version 1)
Quarter: 2012Q4

REPORT INFORMATION
  Report Type: 
  Country: GR (occurrence: GR)
  Receive Date: 20121023
  Receipt Date: 20121023
  Transmission Date: 20130627
  Serious: Yes (Other)
  Sender: FDA-Public Use
  Company Number: GR-B.I. PHARMACEUTICALS,INC./RIDGEFIELD-2012-EU-05138GB

PATIENT
  Age: 74 Year
  Sex: Male

DRUGS (9)
  1. PRADAXA [Suspect]
     Indication: ATRIAL FIBRILLATION
     Dosage: 220 mg
     Route: 048
     Dates: start: 2011
  2. AMLODIPINE [Concomitant]
     Indication: HYPERTENSION
  3. METFORIL [Concomitant]
     Indication: DIABETES MELLITUS
     Dosage: 1700 mg
  4. RYTMONORM [Concomitant]
     Indication: ATRIAL FIBRILLATION
     Dosage: 450 mg
  5. EXFORGE [Concomitant]
     Indication: HYPERTENSION
  6. CO-DIOVAN [Concomitant]
     Indication: HYPERTENSION
  7. ROSUVASTATIN [Concomitant]
     Indication: HYPERLIPIDAEMIA
  8. EZETROL [Concomitant]
     Indication: HYPERCHOLESTEROLAEMIA
  9. VALSARTAN [Concomitant]
     Indication: HYPERTENSION

REACTIONS (1)
  - Transient ischaemic attack [Recovered/Resolved]
